FAERS Safety Report 4596917-8 (Version None)
Quarter: 2005Q1

REPORT INFORMATION
  Report Type: 
  Country: None (occurrence: None)
  Receive Date: 20050225
  Receipt Date: 20050217
  Transmission Date: 20050727
  Serious: Yes (Other)
  Sender: FDA-Public Use
  Company Number: 2005-BP-02559RO

PATIENT
  Age: 24 Year
  Sex: Female

DRUGS (4)
  1. LITHIUM CARBONATE [Suspect]
     Indication: BIPOLAR DISORDER
     Dosage: SEE IMAGE, PO
     Route: 048
  2. LITHIUM CARBONATE [Suspect]
     Indication: BIPOLAR DISORDER
     Dosage: SEE IMAGE, PO
     Route: 048
  3. THIORIDAZINE HCL [Concomitant]
  4. CHLORPROMAZINE [Concomitant]

REACTIONS (4)
  - HYPOMANIA [None]
  - LEUKOCYTOSIS [None]
  - PLATELET COUNT DECREASED [None]
  - PRODUCTIVE COUGH [None]
